FAERS Safety Report 8472879-8 (Version None)
Quarter: 2012Q2

REPORT INFORMATION
  Report Type: 
  Country: None (occurrence: None)
  Receive Date: 20120627
  Receipt Date: 20120319
  Transmission Date: 20120825
  Serious: No
  Sender: FDA-Public Use
  Company Number: US-MYLANLABS-2012S1006223

PATIENT
  Age: 84 Year
  Sex: Male

DRUGS (8)
  1. CITRUCEL [Concomitant]
     Indication: MEDICAL DIET
  2. ALBUTEROL [Concomitant]
  3. OMEPRAZOLE [Suspect]
     Indication: DYSPEPSIA
     Route: 048
     Dates: start: 20090101
  4. LIPITOR [Concomitant]
     Indication: BLOOD CHOLESTEROL INCREASED
  5. OTHER DRUGS FOR OBSTRUCTIVE AIRWAY DISEASES, [Concomitant]
  6. LISINOPRIL [Concomitant]
  7. PRINIVIL [Concomitant]
     Indication: BLOOD PRESSURE INCREASED
  8. ASPIRIN [Concomitant]
     Indication: CARDIOVASCULAR EVENT PROPHYLAXIS

REACTIONS (2)
  - DYSURIA [None]
  - PAINFUL DEFAECATION [None]
